FAERS Safety Report 4440451-2 (Version None)
Quarter: 2004Q3

REPORT INFORMATION
  Report Type: 
  Country: None (occurrence: None)
  Receive Date: 20040728
  Receipt Date: 20040315
  Transmission Date: 20050211
  Serious: No
  Sender: FDA-Public Use
  Company Number: USA040362153

PATIENT
  Age: 44 Year
  Sex: Female
  Weight: 109 kg

DRUGS (5)
  1. STRATTERA [Suspect]
     Indication: ATTENTION DEFICIT/HYPERACTIVITY DISORDER
     Dosage: 18 MG IN THE MORNING
     Dates: start: 20040312
  2. PROZAC [Concomitant]
  3. LEXAPRO [Concomitant]
  4. SEROQUEL [Concomitant]
  5. TOPAMAX [Concomitant]

REACTIONS (2)
  - INSOMNIA [None]
  - TENSION [None]
